FAERS Safety Report 7899051-4 (Version None)
Quarter: 2011Q4

REPORT INFORMATION
  Report Type: 
  Country: None (occurrence: None)
  Receive Date: 20111107
  Receipt Date: 20111027
  Transmission Date: 20120403
  Serious: Yes (Other)
  Sender: FDA-Public Use
  Company Number: US-ASTRAZENECA-2011SE65021

PATIENT
  Age: 56 Year
  Sex: Male
  Weight: 86.2 kg

DRUGS (4)
  1. NEXIUM [Suspect]
     Indication: GASTROOESOPHAGEAL REFLUX DISEASE
     Route: 048
  2. PERCOCET [Concomitant]
     Indication: ANALGESIC THERAPY
  3. NORVASC [Concomitant]
     Indication: BLOOD PRESSURE ABNORMAL
  4. RESTRAL [Concomitant]
     Indication: SLEEP DISORDER

REACTIONS (2)
  - ABDOMINAL PAIN [None]
  - PANCREATITIS CHRONIC [None]
